FAERS Safety Report 4372617-4 (Version None)
Quarter: 2004Q2

REPORT INFORMATION
  Report Type: 
  Country: None (occurrence: None)
  Receive Date: 20040526
  Receipt Date: 20040518
  Transmission Date: 20050107
  Serious: Yes (Hospitalization)
  Sender: FDA-Public Use
  Company Number: US-SHR-04-023112

PATIENT
  Age: 60 Year
  Sex: Female
  Weight: 81.6 kg

DRUGS (19)
  1. BETASERON [Suspect]
     Indication: MULTIPLE SCLEROSIS
     Dosage: 8 MIU EVER 2 D, SUBCUTANEOUS
     Route: 058
     Dates: start: 19940101
  2. BACLOFEN [Concomitant]
  3. DITROPAN /USA/ (OXYBUTYNIN) [Concomitant]
  4. PROZAC [Concomitant]
  5. TIZANIDINE (ITIZANIDINE) [Concomitant]
  6. METAMUCIL-2 [Concomitant]
  7. ZANTAC [Concomitant]
  8. POTASSIUM CHLORIDE [Concomitant]
  9. CALCIUM (CALCIUM) [Concomitant]
  10. XANAX /USA/ (ALPRAZOLAM) [Concomitant]
  11. ZANAFLEX [Concomitant]
  12. VASOTEC [Concomitant]
  13. SENNA (SENNA) [Concomitant]
  14. DIPHENHYDRAMINE (BENADRYL) (DIPHENHYDRAMINE) [Concomitant]
  15. MOTRIN [Concomitant]
  16. CYLERT [Concomitant]
  17. WARFARIN SODIUM (COUMADIN) (WARFARIN SODIUM) [Concomitant]
  18. VITAMIN C [Concomitant]
  19. .. [Concomitant]

REACTIONS (6)
  - INJECTION SITE ERYTHEMA [None]
  - INJECTION SITE INDURATION [None]
  - INJECTION SITE RASH [None]
  - INJECTION SITE WARMTH [None]
  - INTERNATIONAL NORMALISED RATIO INCREASED [None]
  - SUBCUTANEOUS ABSCESS [None]
